FAERS Safety Report 5552602-7 (Version None)
Quarter: 2007Q4

REPORT INFORMATION
  Report Type: 
  Country: None (occurrence: None)
  Receive Date: 20071212
  Receipt Date: 20070621
  Transmission Date: 20080405
  Serious: No
  Sender: FDA-Public Use
  Company Number: US-AMGEN-KDL230686

PATIENT
  Sex: Female

DRUGS (2)
  1. ENBREL [Suspect]
     Indication: RHEUMATOID ARTHRITIS
     Route: 058
     Dates: start: 20050609
  2. METHOTREXATE [Concomitant]
     Dates: start: 20000101

REACTIONS (4)
  - ABNORMAL DREAMS [None]
  - BALANCE DISORDER [None]
  - INJECTION SITE PAIN [None]
  - RHEUMATOID ARTHRITIS [None]
